FAERS Safety Report 5331027-3 (Version None)
Quarter: 2007Q2

REPORT INFORMATION
  Report Type: 
  Country: None (occurrence: None)
  Receive Date: 20070517
  Receipt Date: 20070503
  Transmission Date: 20071010
  Serious: Yes (Hospitalization, Other)
  Sender: FDA-Public Use
  Company Number: POMP-10982

PATIENT
  Age: 19 Week
  Sex: Male
  Weight: 7.4 kg

DRUGS (2)
  1. MYOZYME [Suspect]
     Indication: GLYCOGEN STORAGE DISEASE TYPE II
     Dosage: 150 MG Q2WKS IV
     Route: 042
     Dates: start: 20070104
  2. KREDEX [Concomitant]

REACTIONS (1)
  - RESPIRATORY FAILURE [None]
